FAERS Safety Report 18054157 (Version 2)
Quarter: 2020Q3

REPORT INFORMATION
  Report Type: Spontaneous
  Country: ES (occurrence: ES)
  Receive Date: 20200722
  Receipt Date: 20200731
  Transmission Date: 20201103
  Serious: Yes (Hospitalization)
  Sender: FDA-Public Use
  Company Number: ES-TEVA-2020-ES-1802616

PATIENT
  Age: 53 Year
  Sex: Female

DRUGS (7)
  1. PACLITAXEL. [Suspect]
     Active Substance: PACLITAXEL
     Dosage: EIGHT CYCLES; 2100 MG TOTAL ACCUMULATED DOSE SINCE THE INITIATION OF PACLITAXEL THERAPY
     Route: 065
     Dates: start: 201210, end: 201308
  2. CISPLATIN. [Suspect]
     Active Substance: CISPLATIN
     Indication: SQUAMOUS CELL CARCINOMA OF THE CERVIX
     Dosage: FIRST?LINE TREATMENT FOR SIX CYCLES; CUMULATIVE DOSE WAS 477MG
     Route: 065
     Dates: start: 201102, end: 201105
  3. CARBOPLATIN. [Suspect]
     Active Substance: CARBOPLATIN
     Indication: SQUAMOUS CELL CARCINOMA OF THE CERVIX
     Dosage: AREA UNDER CURVE 6; EIGHT CYCLES
     Route: 065
     Dates: start: 201210, end: 201308
  4. TOPOTECAN [Suspect]
     Active Substance: TOPOTECAN HYDROCHLORIDE
     Indication: SQUAMOUS CELL CARCINOMA OF THE CERVIX
     Dosage: FIRST?LINE TREATMENT FOR SIX CYCLES; CUMULATIVE DOSE WAS 21MG
     Route: 065
     Dates: start: 201102, end: 201105
  5. MYOCET [Suspect]
     Active Substance: DOXORUBICIN
     Indication: SQUAMOUS CELL CARCINOMA OF THE CERVIX
     Dosage: 4 CYCLES
     Route: 065
     Dates: start: 201401, end: 201404
  6. PACLITAXEL. [Suspect]
     Active Substance: PACLITAXEL
     Indication: SQUAMOUS CELL CARCINOMA OF THE CERVIX
     Route: 065
     Dates: start: 201110, end: 201207
  7. CARBOPLATIN. [Suspect]
     Active Substance: CARBOPLATIN
     Dosage: AREA UNDER CURVE OF 5; 4 CYCLES; 4080 MG TOTAL ACCUMULATED DOSE SINCE THE INITIATION OF CARBOPLAT...
     Route: 065
     Dates: start: 201401, end: 201404

REACTIONS (1)
  - Acute myeloid leukaemia [Unknown]
